FAERS Safety Report 6112426-9 (Version None)
Quarter: 2009Q1

REPORT INFORMATION
  Report Type: 
  Country: None (occurrence: None)
  Receive Date: 20090312
  Receipt Date: 20090301
  Transmission Date: 20090719
  Serious: Yes (Hospitalization, Other)
  Sender: FDA-Public Use
  Company Number: PHHY2009BR07742

PATIENT
  Sex: Female
  Weight: 84 kg

DRUGS (11)
  1. SANDIMMUNE [Suspect]
     Dosage: 50 MG
     Route: 048
  2. CYCLOSPORINE [Suspect]
     Dosage: 50 MG, UNK
  3. PREDNISOLONE [Concomitant]
     Dosage: 80 MG/DAY
  4. PREDNISOLONE [Concomitant]
     Dosage: 45 MG/DAY
  5. SINGULAIR [Concomitant]
     Dosage: DOUBLE DOSE
  6. SERETIDE [Concomitant]
     Dosage: 50/500 DOUBLE DOSE
  7. CORTICOSTEROIDS [Concomitant]
     Dosage: HIGH DOSES
  8. CORTICOSTEROIDS [Concomitant]
     Route: 048
  9. ANTIHISTAMINICS [Concomitant]
  10. BRONCHODILATORS [Concomitant]
     Dosage: SHORT AND LONG DURATION
  11. OMEPRAZOLE [Concomitant]

REACTIONS (8)
  - ARTHRALGIA [None]
  - ASTHMATIC CRISIS [None]
  - DERMATITIS ATOPIC [None]
  - DRUG LEVEL DECREASED [None]
  - FALL [None]
  - MYALGIA [None]
  - SWELLING [None]
  - WEIGHT INCREASED [None]
